FAERS Safety Report 4439778-X (Version None)
Quarter: 2004Q3

REPORT INFORMATION
  Report Type: 
  Country: None (occurrence: None)
  Receive Date: 20040831
  Receipt Date: 20040819
  Transmission Date: 20050211
  Serious: Yes (Other)
  Sender: FDA-Public Use
  Company Number: USA-2004-0016486

PATIENT
  Age: 44 Year
  Sex: Female

DRUGS (3)
  1. OXYCONTIN [Suspect]
     Indication: PAIN
  2. WELLBUTRIN [Concomitant]
  3. XANAX [Concomitant]

REACTIONS (4)
  - CONDITION AGGRAVATED [None]
  - INADEQUATE ANALGESIA [None]
  - PARALYSIS [None]
  - PERONEAL MUSCULAR ATROPHY [None]
